FAERS Safety Report 6889712-8 (Version None)
Quarter: 2010Q3

REPORT INFORMATION
  Report Type: 
  Country: None (occurrence: None)
  Receive Date: 20100730
  Receipt Date: 20080408
  Transmission Date: 20110219
  Serious: No
  Sender: FDA-Public Use
  Company Number: US-PFIZER INC-2008031193

PATIENT
  Sex: Male

DRUGS (6)
  1. LIPITOR [Suspect]
  2. LASIX [Concomitant]
  3. LISINOPRIL [Concomitant]
  4. SPIRONOLACTONE [Concomitant]
  5. COREG [Concomitant]
  6. REQUIP [Concomitant]
     Indication: RESTLESS LEGS SYNDROME

REACTIONS (1)
  - BLOOD CREATINE PHOSPHOKINASE INCREASED [None]
